FAERS Safety Report 17218014 (Version 1)
Quarter: 2019Q4

REPORT INFORMATION
  Report Type: Spontaneous
  Country: US (occurrence: US)
  Receive Date: 20191231
  Receipt Date: 20191231
  Transmission Date: 20200122
  Serious: Yes (Hospitalization)
  Sender: FDA-Public Use
  Company Number: US-BIOVITRUM-2019US4641

PATIENT
  Sex: Female

DRUGS (3)
  1. KINERET [Suspect]
     Active Substance: ANAKINRA
     Indication: CRYOPYRIN ASSOCIATED PERIODIC SYNDROME
     Route: 058
     Dates: start: 201702
  2. TRAMADOL. [Concomitant]
     Active Substance: TRAMADOL
     Indication: PAIN
  3. LYRICA [Concomitant]
     Active Substance: PREGABALIN
     Indication: PAIN

REACTIONS (7)
  - Injection site bruising [Unknown]
  - Vomiting [Unknown]
  - Hepatic enzyme increased [Unknown]
  - Drug ineffective [Unknown]
  - Cardiac disorder [Unknown]
  - Injection site rash [Unknown]
  - Pain [Unknown]
